FAERS Safety Report 10625511 (Version 2)
Quarter: 2014Q4

REPORT INFORMATION
  Report Type: Spontaneous
  Country: JP (occurrence: None)
  Receive Date: 20141202
  Receipt Date: 20141219
  Transmission Date: 20150529
  Serious: No
  Sender: FDA-Public Use
  Company Number: JP2014JPN022814

PATIENT
  Age: 32 Year
  Sex: Female
  Weight: 95 kg

DRUGS (4)
  1. DEPAS (ETIZOLAM) [Concomitant]
  2. PAXIL [Suspect]
     Active Substance: PAROXETINE HYDROCHLORIDE
     Indication: PRODUCT USED FOR UNKNOWN INDICATION
     Route: 048
     Dates: start: 2006
  3. LEXOTAN (BROMAZEPAM) [Concomitant]
  4. VEGETAMIN-A (CHLORPROMAZINE + PROMETHAZINE) [Concomitant]

REACTIONS (5)
  - Gestational diabetes [None]
  - Abortion induced [None]
  - Abortion spontaneous [None]
  - Exposure during pregnancy [None]
  - Psychiatric symptom [None]

NARRATIVE: CASE EVENT DATE: 2009
